FAERS Safety Report 4634899-0 (Version None)
Quarter: 2005Q2

REPORT INFORMATION
  Report Type: 
  Country: None (occurrence: None)
  Receive Date: 20050414
  Receipt Date: 20050405
  Transmission Date: 20051028
  Serious: Yes (Other)
  Sender: FDA-Public Use
  Company Number: 200512771US

PATIENT
  Sex: Female
  Weight: 57.6 kg

DRUGS (13)
  1. ARAVA [Suspect]
     Dosage: DOSE: NOT PROVIDED
  2. TRACLEER [Suspect]
     Indication: PULMONARY HYPERTENSION
     Route: 048
     Dates: start: 20040220, end: 20050119
  3. PREDNISONE [Concomitant]
     Dosage: DOSE: NOT PROVIDED
  4. LASIX [Concomitant]
     Dosage: DOSE: NOT PROVIDED
  5. ALDACTONE [Concomitant]
     Dosage: DOSE: NOT PROVIDED
  6. LEVOTHYROXINE [Concomitant]
     Dosage: DOSE: NOT PROVIDED
  7. COUMADIN [Concomitant]
     Dosage: DOSE: NOT PROVIDED
  8. PROZAC [Concomitant]
     Dosage: DOSE: NOT PROVIDED
  9. FOLVITE [Concomitant]
     Dosage: DOSE: NOT PROVIDED
  10. POTASSIUM CHLORIDE [Concomitant]
     Dosage: DOSE: NOT PROVIDED
  11. FLEXERIL [Concomitant]
     Dosage: DOSE: NOT PROVIDED
  12. OXYCODONE HCL [Concomitant]
     Dosage: DOSE: NOT PROVIDED
  13. BELLERGAL [Concomitant]
     Dosage: DOSE: NOT PROVIDED

REACTIONS (5)
  - ALANINE AMINOTRANSFERASE INCREASED [None]
  - ASPARTATE AMINOTRANSFERASE INCREASED [None]
  - BLOOD ALKALINE PHOSPHATASE INCREASED [None]
  - BLOOD BILIRUBIN INCREASED [None]
  - HEPATIC CONGESTION [None]
